FAERS Safety Report 14169449 (Version 1)
Quarter: 2017Q4

REPORT INFORMATION
  Report Type: Spontaneous
  Country: US (occurrence: US)
  Receive Date: 20171107
  Receipt Date: 20171107
  Transmission Date: 20180321
  Serious: Yes (Life-Threatening, Hospitalization, Disabling)
  Sender: FDA-Public Use
  Company Number: None

PATIENT
  Sex: Female
  Weight: 87.75 kg

DRUGS (14)
  1. EFFEXOR XR [Suspect]
     Active Substance: VENLAFAXINE HYDROCHLORIDE
     Indication: PANIC DISORDER
     Dosage: ?          QUANTITY:30 CAPSULE(S);?
     Route: 048
  2. DICLOFENAC SODIUM DR [Concomitant]
     Active Substance: DICLOFENAC SODIUM
  3. LISINOPRIL. [Concomitant]
     Active Substance: LISINOPRIL
  4. LEVOTHYROXINE. [Concomitant]
     Active Substance: LEVOTHYROXINE
  5. IBUPROPHEN [Concomitant]
     Active Substance: IBUPROFEN
  6. EFFEXOR XR [Suspect]
     Active Substance: VENLAFAXINE HYDROCHLORIDE
     Indication: SEASONAL AFFECTIVE DISORDER
     Dosage: ?          QUANTITY:30 CAPSULE(S);?
     Route: 048
  7. EFFEXOR XR [Suspect]
     Active Substance: VENLAFAXINE HYDROCHLORIDE
     Indication: PSYCHOTIC DISORDER
     Dosage: ?          QUANTITY:30 CAPSULE(S);?
     Route: 048
  8. OMEGA GENETICS EPA-DHA 720 [Concomitant]
  9. INVEGA [Concomitant]
     Active Substance: PALIPERIDONE
  10. EFFEXOR XR [Suspect]
     Active Substance: VENLAFAXINE HYDROCHLORIDE
     Indication: GENERALISED ANXIETY DISORDER
     Dosage: ?          QUANTITY:30 CAPSULE(S);?
     Route: 048
  11. EFFEXOR XR [Suspect]
     Active Substance: VENLAFAXINE HYDROCHLORIDE
     Indication: POST-TRAUMATIC STRESS DISORDER
     Dosage: ?          QUANTITY:30 CAPSULE(S);?
     Route: 048
  12. BIOTIN [Concomitant]
     Active Substance: BIOTIN
  13. CARVEDILOL. [Concomitant]
     Active Substance: CARVEDILOL
  14. VITAMIN D3 [Concomitant]
     Active Substance: CHOLECALCIFEROL

REACTIONS (4)
  - Left ventricular dysfunction [None]
  - Chest pain [None]
  - Weight increased [None]
  - Heart rate irregular [None]

NARRATIVE: CASE EVENT DATE: 20141219
